FAERS Safety Report 7223665-8 (Version None)
Quarter: 2011Q1

REPORT INFORMATION
  Report Type: 
  Country: None (occurrence: None)
  Receive Date: 20110112
  Receipt Date: 20101004
  Transmission Date: 20110831
  Serious: No
  Sender: FDA-Public Use
  Company Number: US-ALLERGAN-1012752US

PATIENT
  Age: 59 Year
  Sex: Male

DRUGS (3)
  1. RESTASIS [Suspect]
     Indication: DRY EYE
     Dosage: 1 GTT, BID
     Route: 047
     Dates: start: 20100701
  2. REFRESH P.M. [Concomitant]
     Indication: EYE DISCHARGE
     Dosage: UNK
     Route: 047
  3. SYSTANE [Concomitant]
     Indication: DRY EYE
     Dosage: UNK
     Route: 047

REACTIONS (6)
  - EYE IRRITATION [None]
  - EYE DISCHARGE [None]
  - EYE PAIN [None]
  - DRUG INEFFECTIVE [None]
  - FOREIGN BODY SENSATION IN EYES [None]
  - VISION BLURRED [None]
